FAERS Safety Report 16310109 (Version 2)
Quarter: 2019Q2

REPORT INFORMATION
  Report Type: Spontaneous
  Country: US (occurrence: US)
  Receive Date: 20190514
  Receipt Date: 20190520
  Transmission Date: 20190711
  Serious: Yes (Other)
  Sender: FDA-Public Use
  Company Number: US-BIOMARINAP-US-2019-123541

PATIENT
  Age: 6 Year
  Sex: Male
  Weight: 19.8 kg

DRUGS (1)
  1. KUVAN [Suspect]
     Active Substance: SAPROPTERIN DIHYDROCHLORIDE
     Indication: PHENYLKETONURIA
     Dosage: 400 MILLIGRAM, QD
     Route: 048
     Dates: start: 20171016

REACTIONS (1)
  - Animal bite [Recovered/Resolved]

NARRATIVE: CASE EVENT DATE: 201905
